FAERS Safety Report 8597648-X (Version None)
Quarter: 2012Q3

REPORT INFORMATION
  Report Type: 
  Country: None (occurrence: None)
  Receive Date: 20120816
  Receipt Date: 20120810
  Transmission Date: 20120928
  Serious: Yes (Hospitalization)
  Sender: FDA-Public Use
  Company Number: FR-PFIZER INC-2012195280

PATIENT
  Age: 89 Year
  Sex: Female

DRUGS (7)
  1. ESOMEPRAZOLE SODIUM [Suspect]
     Dosage: 1 DF, UNK
     Route: 048
     Dates: end: 20120702
  2. IRBESARTAN [Suspect]
     Dosage: 150 MG, EACH TWO DAYS
     Route: 048
     Dates: end: 20120703
  3. ASPIRIN [Concomitant]
     Dosage: UNK
  4. EFFEXOR XR [Suspect]
     Indication: DEPRESSION
     Dosage: 37.5 MG, 1X/DAY
     Route: 048
     Dates: start: 20120101, end: 20120701
  5. AMOXICILLIN [Concomitant]
     Dosage: UNK
  6. CHLOROQUINE PHOSPHATE [Suspect]
     Dosage: 1 DF, 2X/DAY
     Route: 048
     Dates: end: 20120701
  7. ZOLPIDEM [Concomitant]
     Dosage: UNK

REACTIONS (3)
  - HYPERTENSION [None]
  - URINARY TRACT INFECTION [None]
  - HYPONATRAEMIA [None]
